FAERS Safety Report 13689547 (Version 1)
Quarter: 2017Q2

REPORT INFORMATION
  Report Type: Spontaneous
  Country: US (occurrence: US)
  Receive Date: 20170626
  Receipt Date: 20170626
  Transmission Date: 20170830
  Serious: Yes (Other)
  Sender: FDA-Public Use
  Company Number: US-LPDUSPRD-20170846

PATIENT
  Age: 65 Year
  Sex: Male

DRUGS (4)
  1. PHENYLEPHRINE HCL [Suspect]
     Active Substance: PHENYLEPHRINE HYDROCHLORIDE
     Dosage: 1000 MICROGRAM
     Route: 065
  2. GLYCOPYRROLATE INJECTION, USP (4605-25) [Suspect]
     Active Substance: GLYCOPYRROLATE
     Dosage: 1 MG
     Route: 065
  3. NEOSTIGMINE [Concomitant]
     Active Substance: NEOSTIGMINE
     Dosage: 2 MG
     Route: 065
  4. EPHEDRINE. [Suspect]
     Active Substance: EPHEDRINE
     Dosage: 50 MG
     Route: 065

REACTIONS (3)
  - Angle closure glaucoma [Unknown]
  - Corneal abrasion [None]
  - Post procedural complication [None]
